APPROVED DRUG PRODUCT: KOSELUGO
Active Ingredient: SELUMETINIB SULFATE
Strength: EQ 10MG BASE
Dosage Form/Route: CAPSULE;ORAL
Application: N213756 | Product #001
Applicant: ASTRAZENECA PHARMACEUTICALS LP
Approved: Apr 10, 2020 | RLD: Yes | RS: No | Type: RX

PATENTS:
Patent 12364684 | Expires: Mar 26, 2029
Patent 9562017 | Expires: Dec 12, 2026
Patent 11813246 | Expires: Mar 26, 2029
Patent 12318367 | Expires: Mar 26, 2029
Patent 7425637 | Expires: Mar 13, 2028
Patent 9156795 | Expires: Dec 12, 2026
Patent 12220403 | Expires: Mar 26, 2029
Patent 8178693 | Expires: Mar 13, 2026

EXCLUSIVITY:
Code: NPP | Date: Sep 10, 2028
Code: NPP | Date: Nov 19, 2028
Code: ODE-288 | Date: Apr 10, 2027